FAERS Safety Report 8356004-X (Version None)
Quarter: 2012Q2

REPORT INFORMATION
  Report Type: 
  Country: None (occurrence: None)
  Receive Date: 20120511
  Receipt Date: 20120511
  Transmission Date: 20120825
  Serious: Yes (Other)
  Sender: FDA-Public Use
  Company Number: None

PATIENT
  Age: 67 Year
  Sex: Female
  Weight: 70.3075 kg

DRUGS (1)
  1. KOMBIGLYZE XR [Suspect]
     Indication: DIABETES MELLITUS
     Dosage: 2 TABS WITH EVENING MEAL EVERY DAY PO
     Route: 048
     Dates: start: 20120309, end: 20120505

REACTIONS (8)
  - NAUSEA [None]
  - VOMITING [None]
  - ARTHRALGIA [None]
  - OEDEMA PERIPHERAL [None]
  - SOMNOLENCE [None]
  - PALPITATIONS [None]
  - DYSPNOEA [None]
  - DIARRHOEA [None]
